FAERS Safety Report 4504265-7 (Version None)
Quarter: 2004Q4

REPORT INFORMATION
  Report Type: 
  Country: None (occurrence: None)
  Receive Date: 20041116
  Receipt Date: 20041116
  Transmission Date: 20050328
  Serious: Yes (Hospitalization)
  Sender: FDA-Public Use
  Company Number: None

PATIENT
  Age: 58 Year
  Sex: Male
  Weight: 80.7403 kg

DRUGS (5)
  1. HYDROCHLOROTHIAZIDE [Suspect]
     Dosage: 12.5 MG DAILY
     Dates: start: 20040805, end: 20040824
  2. ENALAPRIL [Suspect]
     Dosage: 20 MG DAILY
     Dates: start: 20040805, end: 20040824
  3. ATROVASTATIN CALCIUM [Concomitant]
  4. GEMFIBROZIL [Concomitant]
  5. ALLOPURINOL [Concomitant]

REACTIONS (3)
  - ASTHENIA [None]
  - BLOOD CREATININE INCREASED [None]
  - DIZZINESS [None]
